FAERS Safety Report 21648290 (Version 1)
Quarter: 2022Q4

REPORT INFORMATION
  Report Type: Spontaneous
  Country: FR (occurrence: FR)
  Receive Date: 20221128
  Receipt Date: 20221128
  Transmission Date: 20230113
  Serious: Yes (Other)
  Sender: FDA-Public Use
  Company Number: FR-AMGEN-FRASP2022202548

PATIENT
  Age: 63 Year
  Sex: Male

DRUGS (1)
  1. DARBEPOETIN ALFA [Suspect]
     Active Substance: DARBEPOETIN ALFA
     Indication: Anaemia
     Dosage: UNK
     Route: 065
     Dates: start: 201611

REACTIONS (3)
  - Paroxysmal nocturnal haemoglobinuria [Unknown]
  - Acute myeloid leukaemia [Unknown]
  - Cholecystitis [Unknown]

NARRATIVE: CASE EVENT DATE: 20170801
